FAERS Safety Report 4451118-9 (Version None)
Quarter: 2004Q3

REPORT INFORMATION
  Report Type: 
  Country: None (occurrence: None)
  Receive Date: 20040913
  Receipt Date: 20040617
  Transmission Date: 20050211
  Serious: No
  Sender: FDA-Public Use
  Company Number: 2004-BP-04842BP(0)

PATIENT
  Age: 75 Year
  Sex: Female

DRUGS (6)
  1. SPIRIVA [Suspect]
     Indication: CHRONIC OBSTRUCTIVE AIRWAYS DISEASE
     Dosage: 18 MCG (18 MCG), IH
     Dates: start: 20040101
  2. OXYGEN (OXYGEN) [Concomitant]
  3. ALBUTEROL NEBS (SALBUTAMOL) [Concomitant]
  4. FORADIL [Concomitant]
  5. TOPROL-XL [Concomitant]
  6. ALTACE [Concomitant]

REACTIONS (2)
  - DYSPNOEA [None]
  - HEART RATE INCREASED [None]
